FAERS Safety Report 14150114 (Version 2)
Quarter: 2017Q4

REPORT INFORMATION
  Report Type: Spontaneous
  Country: US (occurrence: US)
  Receive Date: 20171101
  Receipt Date: 20171106
  Transmission Date: 20180321
  Serious: Yes (Other)
  Sender: FDA-Public Use
  Company Number: US-TEVA-819849USA

PATIENT
  Sex: Female

DRUGS (2)
  1. PRAVASTATIN. [Suspect]
     Active Substance: PRAVASTATIN
     Route: 065
  2. MELOXICAM. [Suspect]
     Active Substance: MELOXICAM
     Route: 065

REACTIONS (4)
  - Wrong technique in product usage process [Unknown]
  - Product packaging issue [Unknown]
  - Haemorrhage [Unknown]
  - Product lot number issue [Unknown]
